FAERS Safety Report 11117780 (Version 3)
Quarter: 2015Q3

REPORT INFORMATION
  Report Type: Spontaneous
  Country: DE (occurrence: DE)
  Receive Date: 20150518
  Receipt Date: 20150716
  Transmission Date: 20151125
  Serious: Yes (Hospitalization, Other)
  Sender: FDA-Public Use
  Company Number: DE-UCBSA-2015015173

PATIENT
  Age: 60 Year
  Sex: Male

DRUGS (4)
  1. JODETTEN [Concomitant]
     Indication: THYROID DISORDER
     Dosage: 1530 ?G, WEEKLY (QW)
     Route: 048
  2. LEVETIRACETAM. [Suspect]
     Active Substance: LEVETIRACETAM
     Indication: SEIZURE
     Dosage: UNK UNK, 2X/DAY (BID)
     Route: 048
     Dates: start: 201312, end: 20140317
  3. SERTRALINE [Concomitant]
     Active Substance: SERTRALINE HYDROCHLORIDE
     Indication: DEPRESSION
     Dosage: 50 MG, ONCE DAILY (QD)
     Route: 048
  4. QUETIAPIN [Concomitant]
     Active Substance: QUETIAPINE
     Indication: DEPRESSION
     Dosage: 50 MG, ONCE DAILY (QD)
     Route: 048

REACTIONS (2)
  - Glioblastoma [Recovered/Resolved]
  - Seizure [Recovered/Resolved]

NARRATIVE: CASE EVENT DATE: 20140317
